FAERS Safety Report 20559880 (Version 1)
Quarter: 2022Q1

REPORT INFORMATION
  Report Type: Spontaneous
  Country: US (occurrence: None)
  Receive Date: 20220305
  Receipt Date: 20220305
  Transmission Date: 20220424
  Serious: Yes (Hospitalization)
  Sender: FDA-Public Use
  Company Number: None

PATIENT
  Age: 52 Year
  Sex: Male
  Weight: 88.2 kg

DRUGS (6)
  1. DEXAMETHASONE [Suspect]
     Active Substance: DEXAMETHASONE
     Dates: end: 20170411
  2. ONCASPAR [Suspect]
     Active Substance: PEGASPARGASE
     Dosage: OTHER QUANTITY : 3750 UNIT;?
     Dates: end: 20170408
  3. CYTARABINE [Suspect]
     Active Substance: CYTARABINE
     Dates: end: 20170320
  4. DAUNORUBICIN [Suspect]
     Active Substance: DAUNORUBICIN
     Dates: end: 20170412
  5. METHOTREXATE [Suspect]
     Active Substance: METHOTREXATE
     Dates: end: 20170417
  6. VINCRISTINE SULFATE [Suspect]
     Active Substance: VINCRISTINE SULFATE
     Dates: end: 20170412

REACTIONS (7)
  - Hyperglycaemia [None]
  - Pneumonia [None]
  - Pleuritic pain [None]
  - Haemoptysis [None]
  - Pleural effusion [None]
  - Melaena [None]
  - Cough [None]

NARRATIVE: CASE EVENT DATE: 20170417
